FAERS Safety Report 9203409 (Version 1)
Quarter: 2013Q2

REPORT INFORMATION
  Report Type: Spontaneous
  Country: US (occurrence: None)
  Receive Date: 20130402
  Receipt Date: 20130402
  Transmission Date: 20140414
  Serious: Yes (Hospitalization)
  Sender: FDA-Public Use
  Company Number: None

PATIENT
  Age: 64 Year
  Sex: Male
  Weight: 125.8 kg

DRUGS (2)
  1. WARFARIN [Suspect]
     Indication: ATRIAL FIBRILLATION
     Dosage: 1/2 TAB EVERY DAY PO
     Route: 048
     Dates: start: 20120807
  2. ASPIRIN [Suspect]
     Indication: CORONARY ARTERY DISEASE
     Route: 048
     Dates: start: 20121218

REACTIONS (7)
  - Gastric haemorrhage [None]
  - Coagulopathy [None]
  - Dizziness [None]
  - Asthenia [None]
  - Syncope [None]
  - Haemoglobin decreased [None]
  - Duodenitis [None]
